FAERS Safety Report 9718826 (Version 1)
Quarter: 2013Q4

REPORT INFORMATION
  Report Type: Spontaneous
  Country: BR (occurrence: BR)
  Receive Date: 20131127
  Receipt Date: 20131127
  Transmission Date: 20140711
  Serious: Yes (Other)
  Sender: FDA-Public Use
  Company Number: BR-009507513-1311BRA010613

PATIENT
  Sex: Male
  Weight: 80 kg

DRUGS (7)
  1. VYTORIN [Suspect]
     Dosage: 10/20 MG, QPM
     Route: 048
     Dates: start: 2009
  2. XARELTO [Concomitant]
     Indication: ANTIPLATELET THERAPY
     Dosage: 20 MG, UNK
     Dates: start: 201308, end: 201308
  3. XARELTO [Concomitant]
     Dosage: 20 MG, UNK
     Dates: start: 201308, end: 201308
  4. ATACAND [Concomitant]
     Indication: HYPERTENSION
     Dosage: 16 MG, QD
     Route: 048
     Dates: start: 2011
  5. CITALOPRAM [Concomitant]
     Indication: SEDATIVE THERAPY
     Dosage: 20 MG, QAM
     Route: 048
     Dates: start: 2009
  6. ZYLORIC [Concomitant]
     Indication: BLOOD URIC ACID
     Dosage: 100 MG, QD
     Route: 048
     Dates: start: 2009
  7. CENTRUM (MINERALS (UNSPECIFIED) (+) VITAMINS (UNSPECIFIED)) [Concomitant]
     Indication: FATIGUE
     Dosage: 1 CAPSULE, QD
     Route: 048

REACTIONS (6)
  - Intestinal haemorrhage [Unknown]
  - Intestinal haemorrhage [Recovered/Resolved]
  - Cardiac pacemaker insertion [Unknown]
  - Arrhythmia [Not Recovered/Not Resolved]
  - Glucose tolerance impaired [Not Recovered/Not Resolved]
  - Prostatic disorder [Unknown]
